FAERS Safety Report 7511226-2 (Version None)
Quarter: 2011Q2

REPORT INFORMATION
  Report Type: 
  Country: None (occurrence: None)
  Receive Date: 20110531
  Receipt Date: 20110518
  Transmission Date: 20111010
  Serious: Yes (Hospitalization, Other)
  Sender: FDA-Public Use
  Company Number: US-JNJFOC-20110312434

PATIENT
  Sex: Female
  Weight: 54.43 kg

DRUGS (3)
  1. ADVAIR DISKUS 100/50 [Concomitant]
     Indication: ASTHMA
     Route: 055
  2. LEVAQUIN [Suspect]
     Indication: PNEUMONIA BACTERIAL
     Route: 048
     Dates: start: 20110222, end: 20110223
  3. LEVOXYL [Concomitant]
     Indication: HYPOTHYROIDISM
     Dosage: 88-100MCG
     Route: 065

REACTIONS (7)
  - ADVERSE EVENT [None]
  - INSOMNIA [None]
  - PYREXIA [None]
  - NAUSEA [None]
  - HALLUCINATION, VISUAL [None]
  - ATRIAL FIBRILLATION [None]
  - BACTERIAL TEST POSITIVE [None]
